FAERS Safety Report 13061497 (Version 1)
Quarter: 2016Q4

REPORT INFORMATION
  Report Type: Spontaneous
  Country: US (occurrence: US)
  Receive Date: 20161226
  Receipt Date: 20161226
  Transmission Date: 20170207
  Serious: No
  Sender: FDA-Public Use
  Company Number: US-NOVEN PHARMACEUTICALS, INC.-US2016000046

PATIENT
  Age: 41 Year
  Sex: Female

DRUGS (1)
  1. MINIVELLE [Suspect]
     Active Substance: ESTRADIOL
     Indication: HORMONE REPLACEMENT THERAPY
     Dosage: USING TWO, 0.05 MG PATCH, UNKNOWN
     Route: 062
     Dates: start: 20151229

REACTIONS (4)
  - Wrong technique in product usage process [Not Recovered/Not Resolved]
  - Accidental exposure to product [Unknown]
  - Off label use [Not Recovered/Not Resolved]
  - No adverse event [Unknown]

NARRATIVE: CASE EVENT DATE: 20151229
